FAERS Safety Report 5253469-7 (Version None)
Quarter: 2007Q1

REPORT INFORMATION
  Report Type: 
  Country: None (occurrence: None)
  Receive Date: 20070301
  Receipt Date: 20070216
  Transmission Date: 20070707
  Serious: Yes (Other)
  Sender: FDA-Public Use
  Company Number: US-ELI_LILLY_AND_COMPANY-US200702003639

PATIENT
  Sex: Female

DRUGS (4)
  1. CYMBALTA [Suspect]
     Dosage: UNK, UNK
  2. LEXAPRO [Concomitant]
     Dates: end: 20061201
  3. LANTUS [Concomitant]
     Dosage: 10 U, EACH EVENING
  4. HUMULIN R [Suspect]
     Dosage: 3 U, 3/D

REACTIONS (3)
  - BLOOD GLUCOSE DECREASED [None]
  - LOSS OF CONSCIOUSNESS [None]
  - MEMORY IMPAIRMENT [None]
